FAERS Safety Report 7946423-5 (Version None)
Quarter: 2011Q4

REPORT INFORMATION
  Report Type: 
  Country: None (occurrence: None)
  Receive Date: 20111129
  Receipt Date: 20111118
  Transmission Date: 20120403
  Serious: Yes (Other)
  Sender: FDA-Public Use
  Company Number: US-BAYER-201012509NA

PATIENT
  Sex: Female
  Weight: 79 kg

DRUGS (8)
  1. PHENYLEPHRINE HCL [Concomitant]
  2. FAMOTIDINE [Concomitant]
     Indication: GASTRIC ULCER
     Dosage: UNK
     Dates: start: 20090430
  3. YASMIN [Suspect]
     Indication: ACNE
     Dosage: UNK
     Dates: start: 20081201, end: 20090401
  4. OMEPRAZOLE [Concomitant]
     Indication: GASTRIC ULCER
     Dosage: UNK
     Dates: start: 20090504
  5. YASMIN [Suspect]
     Indication: PREMENSTRUAL SYNDROME
  6. YASMIN [Suspect]
  7. GUJAPHENYL [Concomitant]
  8. MICROGESTIN 1.5/30 [Concomitant]

REACTIONS (2)
  - AORTIC ANEURYSM [None]
  - DEEP VEIN THROMBOSIS [None]
